FAERS Safety Report 6868772-4 (Version None)
Quarter: 2010Q3

REPORT INFORMATION
  Report Type: 
  Country: None (occurrence: None)
  Receive Date: 20100721
  Receipt Date: 20100721
  Transmission Date: 20110219
  Serious: Yes (Hospitalization)
  Sender: FDA-Public Use
  Company Number: None

PATIENT
  Age: 25 Year
  Sex: Male
  Weight: 72.5755 kg

DRUGS (1)
  1. E-CIGARETTE 16MG HEALTH E-CIGARETTE [Suspect]
     Indication: TOBACCO USER
     Dates: start: 20100715, end: 20100719

REACTIONS (3)
  - DIZZINESS [None]
  - HYPERHIDROSIS [None]
  - VOMITING [None]
